FAERS Safety Report 11821294 (Version 1)
Quarter: 2015Q4

REPORT INFORMATION
  Report Type: Spontaneous
  Country: US (occurrence: US)
  Receive Date: 20151210
  Receipt Date: 20151210
  Transmission Date: 20160305
  Serious: No
  Sender: FDA-Public Use
  Company Number: US-JNJFOC-20150812774

PATIENT
  Sex: Male

DRUGS (8)
  1. METOPROLOL [Concomitant]
     Active Substance: METOPROLOL
     Indication: DIABETES MELLITUS
  2. LANTUS [Concomitant]
     Active Substance: INSULIN GLARGINE
  3. TAMSULOSIN [Concomitant]
     Active Substance: TAMSULOSIN
     Indication: BENIGN PROSTATIC HYPERPLASIA
  4. COMPAZINE [Concomitant]
     Active Substance: PROCHLORPERAZINE MALEATE
     Indication: NAUSEA
  5. ASPIRIN. [Concomitant]
     Active Substance: ASPIRIN
  6. ACETAMINOPHEN. [Concomitant]
     Active Substance: ACETAMINOPHEN
  7. IMBRUVICA [Suspect]
     Active Substance: IBRUTINIB
     Indication: CHRONIC LYMPHOCYTIC LEUKAEMIA
     Route: 048
     Dates: start: 201502, end: 201503
  8. IMBRUVICA [Suspect]
     Active Substance: IBRUTINIB
     Indication: CHRONIC LYMPHOCYTIC LEUKAEMIA
     Route: 048
     Dates: start: 201503

REACTIONS (2)
  - Neutropenia [Not Recovered/Not Resolved]
  - Night sweats [Unknown]

NARRATIVE: CASE EVENT DATE: 2015
